FAERS Safety Report 11271580 (Version 1)
Quarter: 2015Q3

REPORT INFORMATION
  Report Type: Spontaneous
  Country: FR (occurrence: FR)
  Receive Date: 20150715
  Receipt Date: 20150715
  Transmission Date: 20151125
  Serious: Yes (Hospitalization)
  Sender: FDA-Public Use
  Company Number: FR-ROCHE-1606886

PATIENT
  Age: 88 Year
  Sex: Male

DRUGS (8)
  1. SERETIDE [Concomitant]
     Active Substance: FLUTICASONE FUROATE\SALMETEROL XINAFOATE
     Indication: CHRONIC OBSTRUCTIVE PULMONARY DISEASE
     Dosage: LONG-TERM TREATMENT
     Route: 055
  2. IPRATROPIUM BROMIDE\FENOTEROL HYDROBROMIDE [Concomitant]
     Active Substance: FENOTEROL HYDROBROMIDE\IPRATROPIUM BROMIDE
     Indication: CHRONIC OBSTRUCTIVE PULMONARY DISEASE
     Dosage: LONG TERM TREATMENT
     Route: 055
  3. INEXIUM [Suspect]
     Active Substance: ESOMEPRAZOLE
     Indication: PRODUCT USED FOR UNKNOWN INDICATION
     Route: 048
     Dates: start: 20150123, end: 20150128
  4. KARDEGIC [Concomitant]
     Active Substance: ASPIRIN LYSINE
     Dosage: LONG-TERM TREATMENT
     Route: 048
  5. ROCEPHINE [Suspect]
     Active Substance: CEFTRIAXONE SODIUM
     Indication: LUNG INFECTION
     Route: 030
     Dates: start: 20150123, end: 20150130
  6. SOLUPRED (FRANCE) [Concomitant]
     Active Substance: PREDNISOLONE
     Indication: BRONCHITIS CHRONIC
     Route: 048
     Dates: start: 20150123, end: 20150130
  7. SPIRIVA [Concomitant]
     Active Substance: TIOTROPIUM BROMIDE MONOHYDRATE
     Indication: CHRONIC OBSTRUCTIVE PULMONARY DISEASE
     Dosage: LONG-TERM TREATMENT
     Route: 055
  8. XATRAL [Concomitant]
     Active Substance: ALFUZOSIN
     Indication: BENIGN PROSTATIC HYPERPLASIA
     Dosage: LONG-TERM TREATMENT
     Route: 048

REACTIONS (3)
  - Acute kidney injury [Recovering/Resolving]
  - Asthenia [Recovered/Resolved]
  - Decreased appetite [Recovered/Resolved]

NARRATIVE: CASE EVENT DATE: 20150311
